FAERS Safety Report 15119822 (Version 1)
Quarter: 2018Q3

REPORT INFORMATION
  Report Type: Spontaneous
  Country: US (occurrence: US)
  Receive Date: 20180709
  Receipt Date: 20180709
  Transmission Date: 20181010
  Serious: No
  Sender: FDA-Public Use
  Company Number: US-BAYER-2018-122482

PATIENT
  Age: 69 Year
  Sex: Female
  Weight: 58.96 kg

DRUGS (5)
  1. MOBIC [Concomitant]
     Active Substance: MELOXICAM
  2. SIMVASTATIN. [Concomitant]
     Active Substance: SIMVASTATIN
  3. MIRALAX [Suspect]
     Active Substance: POLYETHYLENE GLYCOL 3350
     Indication: GASTROINTESTINAL DISORDER
     Dosage: SLIGHLY MORE THAN A DOSE TO 1/2 DOSE DOSE
     Route: 048
     Dates: start: 201612, end: 201612
  4. MORFINE [Concomitant]
     Active Substance: MORPHINE
  5. MIRALAX [Suspect]
     Active Substance: POLYETHYLENE GLYCOL 3350
     Indication: GASTROINTESTINAL DISORDER
     Dosage: SLIGHLY MORE THAN A DOSE TO 1/2 DOSE DOSE
     Route: 048
     Dates: start: 20180620, end: 20180624

REACTIONS (7)
  - Abnormal faeces [Recovered/Resolved]
  - Diarrhoea [Not Recovered/Not Resolved]
  - Diarrhoea [Recovered/Resolved]
  - Incontinence [Not Recovered/Not Resolved]
  - Extra dose administered [Unknown]
  - Incorrect dose administered [Unknown]
  - Abnormal faeces [Not Recovered/Not Resolved]

NARRATIVE: CASE EVENT DATE: 201612
